FAERS Safety Report 7768991-9 (Version None)
Quarter: 2011Q3

REPORT INFORMATION
  Report Type: 
  Country: None (occurrence: None)
  Receive Date: 20110922
  Receipt Date: 20110712
  Transmission Date: 20111222
  Serious: No
  Sender: FDA-Public Use
  Company Number: US-ASTRAZENECA-2011SE41296

PATIENT
  Age: 55 Year
  Sex: Female

DRUGS (5)
  1. NAPROSYN [Concomitant]
     Indication: PAIN
  2. PROZAC [Concomitant]
  3. SEROQUEL [Suspect]
     Indication: BIPOLAR DISORDER
     Dosage: TOTAL DAILY DOSE 25 MG, FREQUENCY TWO TIMES A DAY
     Route: 048
     Dates: start: 20100101
  4. XANAX [Concomitant]
  5. ATENOLOL [Concomitant]

REACTIONS (1)
  - ANKLE FRACTURE [None]
